FAERS Safety Report 13215111 (Version 1)
Quarter: 2017Q1

REPORT INFORMATION
  Report Type: Spontaneous
  Country: US (occurrence: US)
  Receive Date: 20170210
  Receipt Date: 20170210
  Transmission Date: 20170428
  Serious: No
  Sender: FDA-Public Use
  Company Number: US-009507513-1701USA006103

PATIENT
  Age: 23 Year
  Sex: Female
  Weight: 47.62 kg

DRUGS (3)
  1. NEXPLANON [Suspect]
     Active Substance: ETONOGESTREL
     Indication: CONTRACEPTION
     Dosage: 3 YEAR IMPLANT, ON RIGHT ARM
     Route: 059
     Dates: start: 201509
  2. ADDERALL [Concomitant]
     Active Substance: AMPHETAMINE ASPARTATE\AMPHETAMINE SULFATE\DEXTROAMPHETAMINE SACCHARATE\DEXTROAMPHETAMINE SULFATE
  3. KLONOPIN [Concomitant]
     Active Substance: CLONAZEPAM

REACTIONS (5)
  - Menstrual disorder [Unknown]
  - Back pain [Unknown]
  - Menstruation delayed [Unknown]
  - Vaginal discharge [Unknown]
  - Stress [Unknown]

NARRATIVE: CASE EVENT DATE: 2015
